FAERS Safety Report 7431906-7 (Version None)
Quarter: 2011Q2

REPORT INFORMATION
  Report Type: 
  Country: None (occurrence: None)
  Receive Date: 20110422
  Receipt Date: 20110419
  Transmission Date: 20111010
  Serious: Yes (Other)
  Sender: FDA-Public Use
  Company Number: JP-PFIZER INC-2011084926

PATIENT
  Age: 1 Year
  Sex: Male

DRUGS (1)
  1. ZITHROMAX [Suspect]

REACTIONS (3)
  - CONVULSION [None]
  - CYANOSIS [None]
  - PYREXIA [None]
